FAERS Safety Report 9838518 (Version 1)
Quarter: 2014Q1

REPORT INFORMATION
  Report Type: Spontaneous
  Country: US (occurrence: US)
  Receive Date: 20140123
  Receipt Date: 20140123
  Transmission Date: 20141002
  Serious: No
  Sender: FDA-Public Use
  Company Number: US-ASTELLAS-2013US008369

PATIENT
  Sex: 0

DRUGS (2)
  1. TARCEVA [Suspect]
     Indication: PRODUCT USED FOR UNKNOWN INDICATION
     Dosage: UNK
     Route: 048
  2. DOXYCYCLINE [Suspect]
     Indication: RASH
     Dosage: UNK
     Route: 065

REACTIONS (2)
  - Rash pustular [Unknown]
  - Dyspepsia [Unknown]
